FAERS Safety Report 20126542 (Version 1)
Quarter: 2021Q4

REPORT INFORMATION
  Report Type: Spontaneous
  Country: CZ (occurrence: CZ)
  Receive Date: 20211129
  Receipt Date: 20211129
  Transmission Date: 20220303
  Serious: Yes (Other)
  Sender: FDA-Public Use
  Company Number: CZ-002147023-NVSC2021CZ180725

PATIENT
  Sex: Female

DRUGS (3)
  1. OMEPRAZOLE [Suspect]
     Active Substance: OMEPRAZOLE
     Indication: Gastrooesophageal reflux disease
     Dosage: UNK, QD
     Route: 065
  2. NAFTIFINE HYDROCHLORIDE [Suspect]
     Active Substance: NAFTIFINE HYDROCHLORIDE
     Indication: Onychomycosis
     Dosage: 2 GTT DROPS, QD(1 DRP, BID)
     Route: 065
  3. TELMISARTAN [Concomitant]
     Active Substance: TELMISARTAN
     Indication: Hypertension
     Dosage: 40 GRAM, QD
     Route: 065

REACTIONS (10)
  - Skin burning sensation [Recovered/Resolved]
  - Hypersensitivity [Recovered/Resolved]
  - Haemorrhage [Unknown]
  - Blister [Recovered/Resolved]
  - Erythema [Recovered/Resolved]
  - Pruritus [Recovered/Resolved]
  - Skin hypertrophy [Not Recovered/Not Resolved]
  - Skin discolouration [Unknown]
  - Skin wrinkling [Not Recovered/Not Resolved]
  - Skin exfoliation [Unknown]
